FAERS Safety Report 17601531 (Version 1)
Quarter: 2020Q1

REPORT INFORMATION
  Report Type: Report from Study
  Country: None (occurrence: US)
  Receive Date: 20200331
  Receipt Date: 20200331
  Transmission Date: 20200409
  Serious: Yes (Other)
  Sender: FDA-Public Use
  Company Number: US-ABBVIE-19K-163-3183509-00

PATIENT
  Sex: Female

DRUGS (4)
  1. HUMIRA [Suspect]
     Active Substance: ADALIMUMAB
     Indication: CROHN^S DISEASE
     Route: 058
  2. HUMIRA [Suspect]
     Active Substance: ADALIMUMAB
     Indication: UVEITIS
  3. HUMIRA [Suspect]
     Active Substance: ADALIMUMAB
     Indication: CROHN^S DISEASE
     Dosage: CITRATE FREE
     Route: 058
  4. HUMIRA [Suspect]
     Active Substance: ADALIMUMAB
     Indication: UVEITIS
     Route: 058

REACTIONS (11)
  - Fatigue [Unknown]
  - Injection site bruising [Unknown]
  - Haemorrhage [Unknown]
  - Urinary tract infection [Unknown]
  - Cataract [Unknown]
  - Joint dislocation [Unknown]
  - Inflammation [Unknown]
  - Injection site haemorrhage [Unknown]
  - Calcinosis [Unknown]
  - Weight decreased [Unknown]
  - Gastrointestinal disorder [Unknown]
